FAERS Safety Report 8565626-2 (Version None)
Quarter: 2012Q3

REPORT INFORMATION
  Report Type: 
  Country: None (occurrence: None)
  Receive Date: 20120803
  Receipt Date: 20120711
  Transmission Date: 20120928
  Serious: Yes (Hospitalization)
  Sender: FDA-Public Use
  Company Number: BG-BRISTOL-MYERS SQUIBB COMPANY-16723454

PATIENT
  Age: 45 Year
  Sex: Male

DRUGS (1)
  1. ARIPIPRAZOLE [Suspect]
     Indication: SCHIZOPHRENIA
     Dosage: INTERRUPTED:06JUN2012(7DAYS)
     Route: 030
     Dates: start: 20120531

REACTIONS (1)
  - SCHIZOPHRENIA [None]
